FAERS Safety Report 11035595 (Version 4)
Quarter: 2015Q3

REPORT INFORMATION
  Report Type: Spontaneous
  Country: US (occurrence: US)
  Receive Date: 20150415
  Receipt Date: 20150807
  Transmission Date: 20151125
  Serious: Yes (Hospitalization)
  Sender: FDA-Public Use
  Company Number: US-JNJFOC-20150203736

PATIENT
  Age: 40 Year
  Sex: Female

DRUGS (15)
  1. XARELTO [Suspect]
     Active Substance: RIVAROXABAN
     Indication: CEREBROVASCULAR ACCIDENT PROPHYLAXIS
     Route: 048
     Dates: start: 201403, end: 201404
  2. GEMFIBROZIL. [Concomitant]
     Active Substance: GEMFIBROZIL
     Route: 065
     Dates: start: 2014
  3. MELOXICAM. [Concomitant]
     Active Substance: MELOXICAM
     Route: 065
     Dates: start: 2014
  4. HYDROCODONE [Concomitant]
     Active Substance: HYDROCODONE
     Route: 065
     Dates: start: 2012
  5. FLUDROCORTISONE [Concomitant]
     Active Substance: FLUDROCORTISONE
     Route: 065
     Dates: start: 2012
  6. BACLOFEN. [Concomitant]
     Active Substance: BACLOFEN
     Route: 065
     Dates: start: 2012
  7. TIZANIDINE. [Concomitant]
     Active Substance: TIZANIDINE
     Route: 065
     Dates: start: 2015
  8. MECLOZINE [Concomitant]
     Active Substance: MECLIZINE\MECLIZINE HYDROCHLORIDE
     Route: 065
     Dates: start: 2007
  9. NITROSTAT [Concomitant]
     Active Substance: NITROGLYCERIN
     Route: 065
     Dates: start: 2012
  10. RESTORIL [Concomitant]
     Active Substance: TEMAZEPAM
     Route: 065
     Dates: start: 2013
  11. FLUOXETIN [Concomitant]
     Active Substance: FLUOXETINE HYDROCHLORIDE
     Route: 065
     Dates: start: 2012
  12. PROTONIX [Concomitant]
     Active Substance: PANTOPRAZOLE SODIUM
     Route: 065
     Dates: start: 2015
  13. XARELTO [Suspect]
     Active Substance: RIVAROXABAN
     Indication: THROMBOSIS PROPHYLAXIS
     Route: 048
     Dates: start: 201403, end: 201404
  14. XARELTO [Suspect]
     Active Substance: RIVAROXABAN
     Indication: ATRIAL FIBRILLATION
     Route: 048
     Dates: start: 201403, end: 201404
  15. TRAMADOL. [Concomitant]
     Active Substance: TRAMADOL
     Route: 065
     Dates: start: 2014, end: 2014

REACTIONS (2)
  - Anal fissure [Unknown]
  - Rectal haemorrhage [Unknown]

NARRATIVE: CASE EVENT DATE: 201404
